FAERS Safety Report 4614191-0 (Version None)
Quarter: 2005Q1

REPORT INFORMATION
  Report Type: 
  Country: None (occurrence: None)
  Receive Date: 20050316
  Receipt Date: 20050308
  Transmission Date: 20050727
  Serious: Yes (Hospitalization)
  Sender: FDA-Public Use
  Company Number: 2005AP01652

PATIENT
  Age: 82 Year
  Sex: Male

DRUGS (15)
  1. ZESTRIL [Suspect]
     Indication: ESSENTIAL HYPERTENSION
     Dosage: 10 MG DAILY PO
     Route: 048
  2. DIGOXIN [Concomitant]
  3. FUROSEMIDE [Concomitant]
  4. ATENOLOL [Concomitant]
  5. CITALOPRAM HYDROBROMIDE [Concomitant]
  6. NITROGLYCERIN [Concomitant]
  7. CLOPIDOGREL [Concomitant]
  8. FISH OIL [Concomitant]
  9. RISPERIDONE [Concomitant]
  10. SIMVASTATIN [Concomitant]
  11. BENZTROPINE [Concomitant]
  12. DOXEPIN HCL [Concomitant]
  13. DOCUSATE [Concomitant]
  14. SENNA [Concomitant]
  15. NAPROSYN [Suspect]
     Dosage: 500 MG DAILY PO

REACTIONS (2)
  - BLOOD CREATINE PHOSPHOKINASE INCREASED [None]
  - RENAL IMPAIRMENT [None]
